FAERS Safety Report 17060977 (Version 1)
Quarter: 2019Q4

REPORT INFORMATION
  Report Type: Spontaneous
  Country: FR (occurrence: FR)
  Receive Date: 20191121
  Receipt Date: 20191121
  Transmission Date: 20200122
  Serious: Yes (Other)
  Sender: FDA-Public Use
  Company Number: FR-MYLANLABS-2019M1111362

PATIENT
  Age: 93 Year
  Sex: Female

DRUGS (11)
  1. CORVASAL                           /00547101/ [Concomitant]
     Active Substance: MOLSIDOMINE
     Dosage: UNK
  2. FUROSEMIDE. [Concomitant]
     Active Substance: FUROSEMIDE
     Dosage: UNK
  3. COLCHICINE. [Concomitant]
     Active Substance: COLCHICINE
     Dosage: UNK (PRESCRIBED FROM 01/11 TO 05/11)
  4. LANSOYL [Concomitant]
     Active Substance: MINERAL OIL
     Dosage: UNK (PRESCRIBED FROM 01/11 TO 05/11)
  5. PREVISCAN                          /00261401/ [Concomitant]
     Active Substance: PENTOXIFYLLINE
     Dosage: UNK
  6. VANCOMYCIN MYLAN [Suspect]
     Active Substance: VANCOMYCIN
     Indication: URINARY TRACT INFECTION STAPHYLOCOCCAL
     Dosage: 500 MILLIGRAM, QID
     Route: 042
     Dates: start: 20191030, end: 20191102
  7. AMLOR [Concomitant]
     Active Substance: AMLODIPINE BESYLATE
     Dosage: UNK
  8. BISOPROLOL [Concomitant]
     Active Substance: BISOPROLOL
     Dosage: UNK
  9. GENTAMICINE                        /00047101/ [Concomitant]
     Active Substance: GENTAMICIN
     Dosage: UNK FROM 30/10 TO 01/11
  10. LANSOPRAZOLE. [Concomitant]
     Active Substance: LANSOPRAZOLE
     Dosage: UNK
  11. POTASSIUM [Concomitant]
     Active Substance: POTASSIUM
     Dosage: UNK (PRESCRIBED FROM 01/11 TO 05/11)

REACTIONS (3)
  - Inappropriate schedule of product administration [Unknown]
  - Renal impairment [Unknown]
  - Drug level above therapeutic [Unknown]

NARRATIVE: CASE EVENT DATE: 2019
